FAERS Safety Report 14484310 (Version 2)
Quarter: 2018Q1

REPORT INFORMATION
  Report Type: Spontaneous
  Country: US (occurrence: US)
  Receive Date: 20180205
  Receipt Date: 20180208
  Transmission Date: 20180509
  Serious: Yes (Hospitalization, Other)
  Sender: FDA-Public Use
  Company Number: US-SHIRE-US201803110

PATIENT
  Sex: Male

DRUGS (1)
  1. LIALDA [Suspect]
     Active Substance: MESALAMINE
     Indication: PRODUCT USED FOR UNKNOWN INDICATION
     Route: 065

REACTIONS (10)
  - Abdominal hernia [Unknown]
  - Abdominal pain [Unknown]
  - Drug ineffective [Unknown]
  - Crohn^s disease [Unknown]
  - Peritonitis [Unknown]
  - Psoriasis [Unknown]
  - Intestinal perforation [Unknown]
  - Weight increased [Unknown]
  - Colitis [Unknown]
  - Vomiting [Unknown]
